FAERS Safety Report 26012197 (Version 3)
Quarter: 2025Q4

REPORT INFORMATION
  Report Type: Spontaneous
  Country: US (occurrence: US)
  Receive Date: 20251107
  Receipt Date: 20251212
  Transmission Date: 20260119
  Serious: No
  Sender: PFIZER
  Company Number: US-PFIZER INC-202500207755

PATIENT
  Age: 15 Year
  Sex: Male

DRUGS (1)
  1. GENOTROPIN [Suspect]
     Active Substance: SOMATROPIN
     Dosage: 2.4 MG, DAILY
     Dates: start: 202501

REACTIONS (3)
  - Anxiety [Unknown]
  - Device mechanical issue [Unknown]
  - Device delivery system issue [Unknown]
